FAERS Safety Report 9805017 (Version 2)
Quarter: 2015Q2

REPORT INFORMATION
  Report Type: Report from Study
  Country: US (occurrence: US)
  Receive Date: 20140109
  Receipt Date: 20150409
  Transmission Date: 20150821
  Serious: Yes (Death, Hospitalization, Other)
  Sender: FDA-Public Use
  Company Number: US-ROCHE-1329979

PATIENT
  Sex: Female
  Weight: 63.56 kg

DRUGS (18)
  1. MORPHINE SULPHATE DRIP [Concomitant]
     Route: 065
  2. LOMOTIL (UNITED STATES) [Concomitant]
  3. OCTREOTIDE [Concomitant]
     Active Substance: OCTREOTIDE
     Route: 065
  4. IMODIUM [Concomitant]
     Active Substance: LOPERAMIDE HYDROCHLORIDE
  5. AVASTIN [Suspect]
     Active Substance: BEVACIZUMAB
     Indication: METASTASES TO LIVER
  6. PROZAC [Concomitant]
     Active Substance: FLUOXETINE HYDROCHLORIDE
     Route: 065
  7. AVASTIN [Suspect]
     Active Substance: BEVACIZUMAB
     Indication: MALIGNANT LYMPHOID NEOPLASM
  8. SANDOSTATIN [Concomitant]
     Active Substance: OCTREOTIDE ACETATE
  9. AMBIEN [Concomitant]
     Active Substance: ZOLPIDEM TARTRATE
  10. CREON [Concomitant]
     Active Substance: PANCRELIPASE AMYLASE\PANCRELIPASE LIPASE\PANCRELIPASE PROTEASE
  11. AVASTIN [Suspect]
     Active Substance: BEVACIZUMAB
     Indication: NEUROENDOCRINE CARCINOMA
     Route: 042
  12. RAD001 [Concomitant]
     Active Substance: EVEROLIMUS
     Route: 065
     Dates: start: 20080416, end: 2008
  13. LORAZEPAM. [Concomitant]
     Active Substance: LORAZEPAM
  14. TPN [Concomitant]
     Active Substance: AMINO ACIDS\DEXTROSE\ELECTROLYTES NOS\SOYBEAN OIL
  15. AVASTIN [Suspect]
     Active Substance: BEVACIZUMAB
     Indication: CARCINOID SYNDROME
     Route: 065
     Dates: start: 20080416
  16. TEMODAR [Concomitant]
     Active Substance: TEMOZOLOMIDE
  17. AREDIA [Concomitant]
     Active Substance: PAMIDRONATE DISODIUM
     Route: 042
  18. ZOFRAN [Concomitant]
     Active Substance: ONDANSETRON HYDROCHLORIDE
     Route: 065

REACTIONS (22)
  - Diarrhoea [Unknown]
  - Pain [Unknown]
  - Decreased appetite [Unknown]
  - Failure to thrive [Unknown]
  - Disease progression [Unknown]
  - Arthralgia [Unknown]
  - Hepatomegaly [Unknown]
  - Anal fissure excision [Unknown]
  - Fatigue [Unknown]
  - Depression [Unknown]
  - Insomnia [Unknown]
  - Rhinitis allergic [Unknown]
  - Thyroid neoplasm [Unknown]
  - Neuroendocrine carcinoma [Fatal]
  - Abdominal pain [Unknown]
  - Musculoskeletal pain [Unknown]
  - Gastrointestinal disorder [Unknown]
  - Weight decreased [Unknown]
  - Off label use [Unknown]
  - Malnutrition [Unknown]
  - Ascites [Unknown]
  - Cachexia [Unknown]
